FAERS Safety Report 23615013 (Version 1)
Quarter: 2024Q1

REPORT INFORMATION
  Report Type: Spontaneous
  Country: PT (occurrence: PT)
  Receive Date: 20240311
  Receipt Date: 20240311
  Transmission Date: 20240409
  Serious: Yes (Hospitalization, Other)
  Sender: FDA-Public Use
  Company Number: ES-JNJFOC-20230619180

PATIENT
  Age: 56 Year
  Sex: Female

DRUGS (2)
  1. TRABECTEDIN [Suspect]
     Active Substance: TRABECTEDIN
     Indication: Uterine leiomyosarcoma
     Route: 042
     Dates: start: 201910, end: 202202
  2. TRABECTEDIN [Suspect]
     Active Substance: TRABECTEDIN
     Route: 042
     Dates: start: 202203, end: 202209

REACTIONS (3)
  - Embolic stroke [Unknown]
  - Cardiac failure congestive [Unknown]
  - Dilated cardiomyopathy [Unknown]

NARRATIVE: CASE EVENT DATE: 20220201
